FAERS Safety Report 5315297-3 (Version None)
Quarter: 2007Q2

REPORT INFORMATION
  Report Type: 
  Country: None (occurrence: None)
  Receive Date: 20070502
  Receipt Date: 20070420
  Transmission Date: 20071010
  Serious: Yes (Other)
  Sender: FDA-Public Use
  Company Number: FR-PFIZER INC-2007032760

PATIENT
  Age: 25 Year
  Sex: Female

DRUGS (4)
  1. LYRICA [Suspect]
     Indication: PARTIAL SEIZURES
  2. KEPPRA [Concomitant]
  3. LAMICTAL [Concomitant]
  4. TEGRETOL [Concomitant]

REACTIONS (1)
  - NEUTROPENIA [None]
